FAERS Safety Report 10026691 (Version 5)
Quarter: 2016Q2

REPORT INFORMATION
  Report Type: Report from Study
  Country: ZW (occurrence: ZW)
  Receive Date: 20140321
  Receipt Date: 20160607
  Transmission Date: 20160815
  Serious: Yes (Other)
  Sender: FDA-Public Use
  Company Number: ZW-BRISTOL-MYERS SQUIBB COMPANY-20545620

PATIENT
  Age: 35 Year
  Sex: Female

DRUGS (3)
  1. RIFAMPICIN/ISONIAZID/PYRAZINAMIDE/ETHAMBUTOL [Suspect]
     Active Substance: ETHAMBUTOL HYDROCHLORIDE\ISONIAZID\PYRAZINAMIDE\RIFAMPIN
     Indication: TUBERCULOSIS
     Dosage: ISONIAZID CAPS  1 DF= 300/150 MG, QD  INT 12FEB14,
     Route: 048
     Dates: start: 20131203
  2. EFAVIRENZ [Suspect]
     Active Substance: EFAVIRENZ
     Indication: HIV INFECTION
     Dosage: INT 12FEB14
     Route: 048
     Dates: start: 20131203
  3. TRUVADA [Suspect]
     Active Substance: EMTRICITABINE\TENOFOVIR DISOPROXIL FUMARATE
     Indication: HIV INFECTION
     Dosage: 1 DF : 200/300MG  12FEB2014
     Route: 048
     Dates: start: 20131203

REACTIONS (1)
  - Hyperbilirubinaemia [Recovered/Resolved]

NARRATIVE: CASE EVENT DATE: 20140213
